FAERS Safety Report 23485456 (Version 1)
Quarter: 2024Q1

REPORT INFORMATION
  Report Type: Spontaneous
  Country: US (occurrence: US)
  Receive Date: 20240206
  Receipt Date: 20240206
  Transmission Date: 20240409
  Serious: No
  Sender: FDA-Public Use
  Company Number: US-SA-SAC00000000407995

PATIENT
  Age: 68 Year
  Sex: Female

DRUGS (1)
  1. DUPIXENT [Suspect]
     Active Substance: DUPILUMAB
     Indication: Asthma
     Dosage: DOSE-300MG FREQUENCY- EVERY OTHER WEEK
     Route: 058

REACTIONS (3)
  - Impaired healing [Unknown]
  - Condition aggravated [Unknown]
  - Dry eye [Unknown]
